FAERS Safety Report 9371672 (Version 1)
Quarter: 2013Q2

REPORT INFORMATION
  Report Type: Spontaneous
  Country: TR (occurrence: TR)
  Receive Date: 20130627
  Receipt Date: 20130627
  Transmission Date: 20140414
  Serious: Yes (Other)
  Sender: FDA-Public Use
  Company Number: TR-MYLANLABS-2013S1013407

PATIENT
  Age: 38 Year
  Sex: Male

DRUGS (2)
  1. VALPROIC ACID [Suspect]
     Dosage: 2000 MG/DAY
     Route: 065
  2. RISPERIDONE [Concomitant]
     Dosage: 3MG/DAY
     Route: 065

REACTIONS (2)
  - Pleural effusion [Recovering/Resolving]
  - Pericardial effusion [Unknown]
